FAERS Safety Report 15835509 (Version 5)
Quarter: 2019Q4

REPORT INFORMATION
  Report Type: Report from Study
  Country: US (occurrence: US)
  Receive Date: 20190117
  Receipt Date: 20191116
  Transmission Date: 20200122
  Serious: No
  Sender: FDA-Public Use
  Company Number: PHEH2019US002008

PATIENT
  Sex: Female

DRUGS (1)
  1. COSENTYX [Suspect]
     Active Substance: SECUKINUMAB
     Indication: PRODUCT USED FOR UNKNOWN INDICATION
     Route: 065

REACTIONS (6)
  - Musculoskeletal stiffness [Unknown]
  - Arthritis [Unknown]
  - Psoriasis [Recovering/Resolving]
  - Skin lesion [Not Recovered/Not Resolved]
  - Neck deformity [Unknown]
  - Therapy partial responder [Unknown]
